FAERS Safety Report 4684293-1 (Version None)
Quarter: 2005Q2

REPORT INFORMATION
  Report Type: 
  Country: None (occurrence: None)
  Receive Date: 20050531
  Receipt Date: 20040909
  Transmission Date: 20051028
  Serious: Yes (Other)
  Sender: FDA-Public Use
  Company Number: 200416810US

PATIENT
  Age: 73 Year
  Sex: Female

DRUGS (5)
  1. LOVENOX [Suspect]
     Indication: THROMBOSIS
     Dosage: 100 MG QD
     Dates: start: 20040201
  2. LOVENOX [Suspect]
     Indication: THROMBOSIS
     Dosage: 80 MG
  3. LOVENOX [Suspect]
     Indication: THROMBOSIS
     Dosage: 60 MG
  4. GEMCITABINE [Concomitant]
  5. OXALIPLATIN [Concomitant]

REACTIONS (5)
  - CONTUSION [None]
  - HAEMATOCRIT DECREASED [None]
  - HAEMOGLOBIN DECREASED [None]
  - PLATELET COUNT DECREASED [None]
  - RED BLOOD CELL COUNT DECREASED [None]
